FAERS Safety Report 8181506 (Version 2)
Quarter: 2012Q4

REPORT INFORMATION
  Report Type: Spontaneous
  Country: GB (occurrence: None)
  Receive Date: 20111003
  Receipt Date: 20120822
  Transmission Date: 20130627
  Serious: Yes (Hospitalization, Other)
  Sender: FDA-Public Use
  Company Number: 2011AP002120

PATIENT
  Age: 62 Year
  Sex: Male

DRUGS (5)
  1. LEFLUNOMIDE [Suspect]
     Indication: RHEUMATOID ARTHRITIS
     Dosage: 10 MG; PO
     Route: 048
     Dates: start: 20110512
  2. HYDROXYCHLOROQUINE SULFATE [Suspect]
     Indication: RHEUMATOID ARTHRITIS
     Dosage: 200 MG; PO
     Route: 048
     Dates: start: 20090227
  3. METHOTREXATE [Suspect]
     Indication: RHEUMATOID ARTHRITIS
     Dosage: 25 MG; CUT
     Route: 003
     Dates: start: 20041028, end: 20110805
  4. FOLIC ACID [Concomitant]
  5. LANSOPRAZOLE [Concomitant]

REACTIONS (1)
  - ALVEOLITIS [None]
